FAERS Safety Report 25728195 (Version 2)
Quarter: 2025Q3

REPORT INFORMATION
  Report Type: Report from Study
  Country: US (occurrence: US)
  Receive Date: 20250826
  Receipt Date: 20250907
  Transmission Date: 20251020
  Serious: Yes (Hospitalization, Other)
  Sender: ABBVIE
  Company Number: US-ABBVIE-6429776

PATIENT
  Age: 60 Year
  Sex: Female

DRUGS (4)
  1. SKYRIZI [Suspect]
     Active Substance: RISANKIZUMAB-RZAA
     Indication: Psoriatic arthropathy
     Route: 058
     Dates: start: 20250314, end: 20250314
  2. SKYRIZI [Suspect]
     Active Substance: RISANKIZUMAB-RZAA
     Route: 058
     Dates: start: 20250402, end: 20250402
  3. SKYRIZI [Suspect]
     Active Substance: RISANKIZUMAB-RZAA
     Dosage: STRENGTH: 150MG
     Route: 058
     Dates: start: 20250614
  4. PREDNISONE [Suspect]
     Active Substance: PREDNISONE
     Indication: Product used for unknown indication
     Route: 065

REACTIONS (7)
  - Deafness unilateral [Not Recovered/Not Resolved]
  - Localised oedema [Unknown]
  - Balance disorder [Unknown]
  - Blood glucose increased [Unknown]
  - White blood cell count increased [Unknown]
  - Asthenia [Unknown]
  - Nasal oedema [Unknown]

NARRATIVE: CASE EVENT DATE: 20250101
